FAERS Safety Report 8063228-8 (Version None)
Quarter: 2012Q1

REPORT INFORMATION
  Report Type: 
  Country: None (occurrence: None)
  Receive Date: 20120123
  Receipt Date: 20120118
  Transmission Date: 20120608
  Serious: Yes (Death)
  Sender: FDA-Public Use
  Company Number: PHEH2012US001673

PATIENT
  Sex: Male

DRUGS (6)
  1. PREDNISONE [Concomitant]
  2. REVLIMID [Concomitant]
  3. AMBIEN [Concomitant]
  4. OMEPRAZOLE [Concomitant]
  5. EXJADE [Suspect]
     Dosage: 1500 MG, EVERY DAY
     Route: 048
  6. ACETAMINOPHEN [Concomitant]
     Dosage: 325 MG

REACTIONS (1)
  - DEATH [None]
